FAERS Safety Report 22028872 (Version 1)
Quarter: 2023Q1

REPORT INFORMATION
  Report Type: Spontaneous
  Country: US (occurrence: None)
  Receive Date: 20230221
  Receipt Date: 20230221
  Transmission Date: 20230417
  Serious: Yes (Life-Threatening, Hospitalization, Disabling, Other)
  Sender: FDA-Public Use
  Company Number: None

PATIENT
  Age: 63 Year
  Sex: Female
  Weight: 99 kg

DRUGS (1)
  1. ARTIFICIAL TEARS LUBRICANT EYE DROPS (CARBOXYMETHYLCELLULOSE SODIUM) [Suspect]
     Active Substance: CARBOXYMETHYLCELLULOSE SODIUM
     Indication: Dry eye
     Dates: start: 20220303, end: 20220413

REACTIONS (5)
  - Pseudomonas infection [None]
  - Corneal transplant [None]
  - Eye infection bacterial [None]
  - Instillation site infection [None]
  - Blindness unilateral [None]

NARRATIVE: CASE EVENT DATE: 20220406
